FAERS Safety Report 12146421 (Version 1)
Quarter: 2016Q1

REPORT INFORMATION
  Report Type: Spontaneous
  Country: CN (occurrence: CN)
  Receive Date: 20160304
  Receipt Date: 20160304
  Transmission Date: 20160526
  Serious: Yes (Other)
  Sender: FDA-Public Use
  Company Number: CN-SEBELA IRELAND LIMITED-2016SEB00034

PATIENT
  Age: 58 Year
  Sex: Female

DRUGS (2)
  1. INSULIN [Concomitant]
     Active Substance: INSULIN NOS
  2. ALLOPURINOL. [Suspect]
     Active Substance: ALLOPURINOL
     Indication: HYPERURICAEMIA
     Dosage: 50 MG, 3X/DAY
     Route: 065

REACTIONS (2)
  - Diabetes mellitus [Unknown]
  - Drug reaction with eosinophilia and systemic symptoms [Unknown]
